FAERS Safety Report 4637643-6 (Version None)
Quarter: 2005Q2

REPORT INFORMATION
  Report Type: 
  Country: None (occurrence: None)
  Receive Date: 20050418
  Receipt Date: 20050407
  Transmission Date: 20051028
  Serious: Yes (Hospitalization)
  Sender: FDA-Public Use
  Company Number: FR-GLAXOSMITHKLINE-B0377207A

PATIENT
  Age: 42 Year
  Sex: Female

DRUGS (8)
  1. ZELITREX [Suspect]
     Indication: PROCTITIS HERPES
     Dosage: 1G THREE TIMES PER DAY
     Route: 048
     Dates: start: 20050201, end: 20050219
  2. RISPERDAL [Suspect]
     Indication: CONFUSIONAL STATE
     Dosage: 2MG PER DAY
     Route: 048
     Dates: start: 20050212, end: 20050222
  3. ADIAZINE [Concomitant]
     Dosage: 4G PER DAY
     Route: 048
     Dates: start: 20050117
  4. DEPAKENE [Concomitant]
     Dosage: 500MG TWICE PER DAY
     Route: 048
     Dates: start: 20050117
  5. MALOCIDE [Concomitant]
     Dosage: 50MG PER DAY
     Route: 048
     Dates: start: 20050117
  6. TRIFLUCAN [Concomitant]
     Dosage: 200MG PER DAY
     Route: 048
     Dates: start: 20050117
  7. HIV TREATMENTS (UNSPECIFIED) [Concomitant]
     Indication: HIV INFECTION
     Dates: start: 20050220
  8. HALDOL [Concomitant]
     Indication: CONFUSIONAL STATE
     Dates: end: 20050212

REACTIONS (1)
  - PANCYTOPENIA [None]
